FAERS Safety Report 8018890-2 (Version None)
Quarter: 2012Q1

REPORT INFORMATION
  Report Type: 
  Country: None (occurrence: None)
  Receive Date: 20120103
  Receipt Date: 20111228
  Transmission Date: 20120608
  Serious: Yes (Death)
  Sender: FDA-Public Use
  Company Number: FR-PFIZER INC-2011314527

PATIENT
  Age: 77 Year
  Sex: Male

DRUGS (5)
  1. EXELON [Suspect]
     Indication: DEMENTIA
     Dosage: 9.5 MG, 1X/DAY
     Route: 062
  2. RISPERDAL [Suspect]
     Indication: PARKINSON'S DISEASE
     Dosage: 0.5 MG, 1X/DAY
     Route: 048
     Dates: start: 20111101, end: 20111208
  3. MODOPAR [Suspect]
     Indication: PARKINSON'S DISEASE
     Dosage: 1625 MG, 1X/DAY
     Dates: start: 20110901
  4. DIAMICRON [Suspect]
     Indication: TYPE 2 DIABETES MELLITUS
     Dosage: 30 MG, 1X/DAY
     Route: 048
  5. AMLODIPINE BESYLATE [Suspect]
     Indication: HYPERTENSION
     Dosage: 5 MG, 1X/DAY
     Route: 048
     Dates: start: 20110901

REACTIONS (1)
  - HYPOTHERMIA [None]
